FAERS Safety Report 15525861 (Version 2)
Quarter: 2018Q4

REPORT INFORMATION
  Report Type: Spontaneous
  Country: CH (occurrence: CH)
  Receive Date: 20181018
  Receipt Date: 20181112
  Transmission Date: 20190205
  Serious: Yes (Other)
  Sender: FDA-Public Use
  Company Number: CH-LPDUSPRD-20181911

PATIENT
  Sex: Male

DRUGS (1)
  1. FERINJECT [Suspect]
     Active Substance: FERRIC CARBOXYMALTOSE
     Dosage: 300 MG
     Route: 041
     Dates: start: 20150602

REACTIONS (10)
  - Hepatitis acute [Unknown]
  - Nausea [Recovering/Resolving]
  - Cardiovascular disorder [Recovering/Resolving]
  - Asthenia [Not Recovered/Not Resolved]
  - Hypersomnia [Recovering/Resolving]
  - Alanine aminotransferase increased [Unknown]
  - Aspartate aminotransferase increased [Unknown]
  - Malaise [Recovering/Resolving]
  - Dizziness [None]
  - Hepatitis toxic [Unknown]

NARRATIVE: CASE EVENT DATE: 2015
